FAERS Safety Report 20890349 (Version 1)
Quarter: 2022Q2

REPORT INFORMATION
  Report Type: Report from Study
  Country: GR (occurrence: GR)
  Receive Date: 20220530
  Receipt Date: 20220530
  Transmission Date: 20220721
  Serious: Yes (Death, Life-Threatening, Other)
  Sender: FDA-Public Use
  Company Number: GR-TAKEDA-2022TUS034900

PATIENT
  Age: 65 Year
  Sex: Male

DRUGS (1)
  1. HUMAN IMMUNOGLOBULIN G\HYALURONIDASE RECOMBINANT HUMAN [Suspect]
     Active Substance: HUMAN IMMUNOGLOBULIN G\HYALURONIDASE RECOMBINANT HUMAN
     Indication: Immunodeficiency
     Dosage: UNK
     Route: 065
     Dates: start: 20170615

REACTIONS (3)
  - Respiratory tract infection [Fatal]
  - Lung neoplasm malignant [Unknown]
  - Hodgkin^s disease recurrent [Unknown]

NARRATIVE: CASE EVENT DATE: 20210801
